FAERS Safety Report 7267960-5 (Version None)
Quarter: 2011Q1

REPORT INFORMATION
  Report Type: 
  Country: None (occurrence: None)
  Receive Date: 20110201
  Receipt Date: 20110124
  Transmission Date: 20110831
  Serious: Yes (Life-Threatening, Hospitalization)
  Sender: FDA-Public Use
  Company Number: ES-PFIZER INC-2008061617

PATIENT
  Age: 42 Year
  Sex: Female

DRUGS (9)
  1. DOBUPAL [Interacting]
     Route: 048
     Dates: end: 20080607
  2. RELPAX [Suspect]
     Indication: MIGRAINE
     Dosage: 40 MG, 1X/DAY
     Route: 048
     Dates: start: 20080606, end: 20080607
  3. VOLTAREN [Interacting]
     Route: 048
  4. ALAPRYL [Interacting]
     Route: 048
  5. DUPHALAC [Concomitant]
  6. PRIMPERAN TAB [Interacting]
     Dates: start: 20080101
  7. PARACETAMOL [Concomitant]
  8. PANTOPRAZOLE [Concomitant]
  9. STRATTERA [Interacting]
     Route: 048
     Dates: end: 20080607

REACTIONS (2)
  - ACUTE CORONARY SYNDROME [None]
  - DRUG INTERACTION [None]
